FAERS Safety Report 10739321 (Version 7)
Quarter: 2016Q3

REPORT INFORMATION
  Report Type: Report from Study
  Country: AR (occurrence: AR)
  Receive Date: 20150126
  Receipt Date: 20160702
  Transmission Date: 20161109
  Serious: Yes (Hospitalization, Other)
  Sender: FDA-Public Use
  Company Number: AR-ABBVIE-15K-007-1337705-00

PATIENT
  Age: 55 Year
  Sex: Male

DRUGS (1)
  1. HUMIRA [Suspect]
     Active Substance: ADALIMUMAB
     Indication: RHEUMATOID ARTHRITIS
     Route: 058
     Dates: start: 20140908

REACTIONS (7)
  - Wound dehiscence [Unknown]
  - Cough [Unknown]
  - Incision site swelling [Unknown]
  - Postoperative wound complication [Not Recovered/Not Resolved]
  - Pulmonary oedema [Recovering/Resolving]
  - Pulmonary mass [Not Recovered/Not Resolved]
  - Pleural effusion [Unknown]

NARRATIVE: CASE EVENT DATE: 201501
